FAERS Safety Report 15962048 (Version 1)
Quarter: 2019Q1

REPORT INFORMATION
  Report Type: Report from Study
  Country: US (occurrence: US)
  Receive Date: 20190214
  Receipt Date: 20190214
  Transmission Date: 20190417
  Serious: Yes (Death)
  Sender: FDA-Public Use
  Company Number: US-TAIHO ONCOLOGY  INC-EU-2019-00442

PATIENT
  Age: 47 Year
  Sex: Male
  Weight: 75.36 kg

DRUGS (7)
  1. LONSURF [Suspect]
     Active Substance: TIPIRACIL HYDROCHLORIDE\TRIFLURIDINE
     Dosage: CURRENT CYCLE UNKNOWN, THE PATIENT TOOK AT LEAST 6 CYCLES, DISCONTINUED ON AN UNKNOWN DATE
     Route: 048
     Dates: start: 2018
  2. NEUPOGEN [Concomitant]
     Active Substance: FILGRASTIM
     Dosage: NI
  3. CHLORPROMAZINE. [Concomitant]
     Active Substance: CHLORPROMAZINE
     Dosage: NI
  4. TRAMADOL. [Concomitant]
     Active Substance: TRAMADOL
     Dosage: NI
  5. REGLAN [Concomitant]
     Active Substance: METOCLOPRAMIDE HYDROCHLORIDE
     Dosage: NI
  6. LONSURF [Suspect]
     Active Substance: TIPIRACIL HYDROCHLORIDE\TRIFLURIDINE
     Indication: RECTAL CANCER
     Dosage: CURRENT CYCLE UNKNOWN. DOSAGE INCREASED DURING UNSPECIFIED CYCLE.
     Route: 048
     Dates: start: 20180905, end: 2018
  7. BACLOFEN. [Concomitant]
     Active Substance: BACLOFEN
     Dosage: NI

REACTIONS (1)
  - Death [Fatal]

NARRATIVE: CASE EVENT DATE: 201901
